FAERS Safety Report 11300463 (Version 1)
Quarter: 2015Q3

REPORT INFORMATION
  Report Type: Spontaneous
  Country: US (occurrence: US)
  Receive Date: 20150722
  Receipt Date: 20150722
  Transmission Date: 20151125
  Serious: Yes (Other)
  Sender: FDA-Public Use
  Company Number: US-ELI_LILLY_AND_COMPANY-US201312004587

PATIENT
  Age: 70 Year
  Sex: Female

DRUGS (1)
  1. EFFIENT [Suspect]
     Active Substance: PRASUGREL HYDROCHLORIDE
     Indication: PRODUCT USED FOR UNKNOWN INDICATION

REACTIONS (4)
  - Haemorrhage [Unknown]
  - Faeces discoloured [Unknown]
  - Fall [Unknown]
  - Autonomic nervous system imbalance [Unknown]
